FAERS Safety Report 18299017 (Version 3)
Quarter: 2020Q4

REPORT INFORMATION
  Report Type: Spontaneous
  Country: CN (occurrence: CN)
  Receive Date: 20200922
  Receipt Date: 20201009
  Transmission Date: 20210113
  Serious: Yes (Hospitalization)
  Sender: FDA-Public Use
  Company Number: CN-ELI_LILLY_AND_COMPANY-CN202009005077

PATIENT
  Age: 48 Year
  Sex: Male
  Weight: 64 kg

DRUGS (3)
  1. CIALIS [Suspect]
     Active Substance: TADALAFIL
     Indication: ERECTILE DYSFUNCTION
     Dosage: 5 MG, DAILY
     Route: 048
     Dates: start: 20190415
  2. CIALIS [Suspect]
     Active Substance: TADALAFIL
     Dosage: 5 MG, QOD
     Route: 048
     Dates: start: 201905
  3. CIALIS [Suspect]
     Active Substance: TADALAFIL
     Dosage: 5 MG, QOD
     Route: 048
     Dates: end: 20200806

REACTIONS (2)
  - Hepatic necrosis [Recovering/Resolving]
  - Wrong technique in product usage process [Unknown]

NARRATIVE: CASE EVENT DATE: 20200806
